FAERS Safety Report 9178456 (Version 5)
Quarter: 2014Q1

REPORT INFORMATION
  Report Type: Spontaneous
  Country: US (occurrence: US)
  Receive Date: 20130321
  Receipt Date: 20140117
  Transmission Date: 20141002
  Serious: Yes (Hospitalization, Other)
  Sender: FDA-Public Use
  Company Number: US-009507513-1303USA009713

PATIENT
  Sex: Female
  Weight: 60.32 kg

DRUGS (7)
  1. FOSAMAX [Suspect]
     Indication: OSTEOPOROSIS
     Dosage: 10 MG, QD
     Route: 048
     Dates: start: 19990825, end: 200110
  2. FOSAMAX [Suspect]
     Dosage: 70 MG, QW
     Route: 048
     Dates: start: 200110, end: 200709
  3. PREMARIN [Concomitant]
     Dosage: 0.3 MG, HS
     Dates: start: 1987, end: 200803
  4. AMITRIPTYLINE HYDROCHLORIDE [Concomitant]
     Indication: RESTLESS LEGS SYNDROME
     Dosage: UNK
     Dates: start: 1998, end: 2007
  5. ACTONEL [Concomitant]
     Indication: OSTEOPOROSIS
     Dosage: 35 MG, QW
     Route: 048
     Dates: start: 200709, end: 200803
  6. CALCIUM (UNSPECIFIED) [Concomitant]
     Indication: OSTEOPOROSIS
  7. VITAMIN D (UNSPECIFIED) [Concomitant]
     Indication: OSTEOPOROSIS

REACTIONS (43)
  - Intramedullary rod insertion [Unknown]
  - Breast cancer stage I [Unknown]
  - Basal cell carcinoma [Unknown]
  - Cholecystectomy [Unknown]
  - Mastectomy [Unknown]
  - Simple mastectomy [Unknown]
  - Breast cancer [Unknown]
  - Joint arthroplasty [Unknown]
  - Femur fracture [Unknown]
  - Femur fracture [Recovering/Resolving]
  - Impaired healing [Unknown]
  - Foot fracture [Unknown]
  - Peptic ulcer haemorrhage [Unknown]
  - Tooth extraction [Unknown]
  - Jaw fracture [Unknown]
  - Oral surgery [Unknown]
  - Adverse event [Unknown]
  - Stress fracture [Unknown]
  - Foot fracture [Unknown]
  - Osteopenia [Unknown]
  - Bone disorder [Unknown]
  - Decreased appetite [Unknown]
  - Hot flush [Unknown]
  - Migraine [Not Recovered/Not Resolved]
  - Helicobacter infection [Unknown]
  - Giardiasis [Unknown]
  - Gastroenteritis cryptosporidial [Unknown]
  - Skin neoplasm excision [Unknown]
  - Vertebral wedging [Unknown]
  - Rib fracture [Unknown]
  - Osteoarthritis [Unknown]
  - Osteoporotic fracture [Unknown]
  - Insomnia [Unknown]
  - Night sweats [Unknown]
  - Osteoarthritis [Unknown]
  - Osteoarthritis [Unknown]
  - Appendicectomy [Unknown]
  - Groin pain [Unknown]
  - Arthralgia [Unknown]
  - Nausea [Unknown]
  - Nausea [Unknown]
  - Diarrhoea [Unknown]
  - Arthralgia [Unknown]
